FAERS Safety Report 24197816 (Version 5)
Quarter: 2025Q1

REPORT INFORMATION
  Report Type: Report from Study
  Country: BR (occurrence: BR)
  Receive Date: 20240811
  Receipt Date: 20250220
  Transmission Date: 20250408
  Serious: Yes (Other)
  Sender: NOVARTIS
  Company Number: BR-002147023-NVSC2023BR131925

PATIENT
  Sex: Female

DRUGS (11)
  1. KISQALI [Suspect]
     Active Substance: RIBOCICLIB
     Indication: Breast neoplasm
     Route: 065
     Dates: start: 2023
  2. KISQALI [Suspect]
     Active Substance: RIBOCICLIB
     Indication: Neoplasm malignant
     Dosage: UNK, QD
     Route: 065
     Dates: start: 202304, end: 20230503
  3. KISQALI [Suspect]
     Active Substance: RIBOCICLIB
     Route: 065
  4. KISQALI [Suspect]
     Active Substance: RIBOCICLIB
     Route: 065
  5. KISQALI [Suspect]
     Active Substance: RIBOCICLIB
     Route: 065
  6. KISQALI [Suspect]
     Active Substance: RIBOCICLIB
     Route: 065
  7. KISQALI [Suspect]
     Active Substance: RIBOCICLIB
     Dosage: 3 DOSAGE FORM, QD
     Route: 065
     Dates: start: 20240328
  8. KISQALI [Suspect]
     Active Substance: RIBOCICLIB
     Route: 065
  9. TAMOXIFEN [Suspect]
     Active Substance: TAMOXIFEN
     Indication: Product used for unknown indication
     Route: 065
  10. METFORMIN [Suspect]
     Active Substance: METFORMIN HYDROCHLORIDE
     Indication: Diabetes mellitus
     Route: 065
  11. ANASTROZOLE [Suspect]
     Active Substance: ANASTROZOLE
     Indication: Product used for unknown indication
     Route: 065

REACTIONS (40)
  - Metastases to lung [Unknown]
  - Haemothorax [Unknown]
  - Pulmonary oedema [Recovered/Resolved]
  - Pruritus [Recovered/Resolved]
  - Headache [Recovered/Resolved]
  - Wound [Recovered/Resolved]
  - Movement disorder [Unknown]
  - Paranoia [Unknown]
  - Hypersensitivity [Unknown]
  - Skin striae [Unknown]
  - Madarosis [Recovered/Resolved]
  - Urticaria [Recovered/Resolved]
  - Migraine [Recovered/Resolved]
  - Pain in extremity [Unknown]
  - Arthralgia [Unknown]
  - Pruritus [Recovered/Resolved]
  - Headache [Recovered/Resolved]
  - Alopecia [Unknown]
  - Drug intolerance [Unknown]
  - General physical health deterioration [Unknown]
  - Hypermetropia [Unknown]
  - Myopia [Unknown]
  - Astigmatism [Unknown]
  - Influenza [Unknown]
  - Visual impairment [Unknown]
  - Cough [Unknown]
  - Sinusitis [Recovered/Resolved]
  - Pleural effusion [Unknown]
  - Dyspnoea [Recovered/Resolved]
  - Dyspnoea [Recovered/Resolved]
  - Skin exfoliation [Recovering/Resolving]
  - Dry skin [Recovering/Resolving]
  - Paraesthesia [Recovered/Resolved]
  - Skin burning sensation [Recovering/Resolving]
  - Pain in extremity [Recovered/Resolved]
  - Skin fissures [Recovering/Resolving]
  - Skin discolouration [Recovering/Resolving]
  - Joint effusion [Unknown]
  - Bone disorder [Unknown]
  - Memory impairment [Unknown]

NARRATIVE: CASE EVENT DATE: 20230101
